FAERS Safety Report 5877986-1 (Version None)
Quarter: 2008Q3

REPORT INFORMATION
  Report Type: 
  Country: None (occurrence: None)
  Receive Date: 20080911
  Receipt Date: 20080901
  Transmission Date: 20090109
  Serious: Yes (Death)
  Sender: FDA-Public Use
  Company Number: JP-WYE-H03096708

PATIENT
  Age: 40 Year
  Sex: Female

DRUGS (2)
  1. ANCARON [Suspect]
     Indication: VENTRICULAR TACHYCARDIA
     Dosage: INITIAL RAPID INFUSION OF 1.25 MG/DL AT RATE OF 10ML/MIN
     Route: 042
     Dates: start: 20080301, end: 20080301
  2. ANCARON [Suspect]
     Dosage: LOADING INFUSION OF 1.50 MG/DL AT RATE OF 33 ML/HR
     Route: 042
     Dates: start: 20080301, end: 20080302

REACTIONS (4)
  - CARDIAC ARREST [None]
  - CARDIAC FAILURE [None]
  - CONDITION AGGRAVATED [None]
  - DRUG INEFFECTIVE [None]
